FAERS Safety Report 21286785 (Version 1)
Quarter: 2022Q3

REPORT INFORMATION
  Report Type: Spontaneous
  Country: CO (occurrence: CO)
  Receive Date: 20220902
  Receipt Date: 20220902
  Transmission Date: 20221026
  Serious: Yes (Other)
  Sender: FDA-Public Use
  Company Number: CO-PFIZER INC-202100951562

PATIENT
  Sex: Male

DRUGS (1)
  1. GENOTROPIN [Suspect]
     Active Substance: SOMATROPIN
     Dosage: 1.4 MG, UNKNOWN FREQUENCY
     Route: 058
     Dates: start: 2015, end: 202105

REACTIONS (3)
  - Arthropathy [Unknown]
  - Knee deformity [Unknown]
  - Elbow deformity [Unknown]
